FAERS Safety Report 15555566 (Version 7)
Quarter: 2019Q2

REPORT INFORMATION
  Report Type: Report from Study
  Country: JP (occurrence: JP)
  Receive Date: 20181026
  Receipt Date: 20190523
  Transmission Date: 20190711
  Serious: Yes (Life-Threatening)
  Sender: FDA-Public Use
  Company Number: JP-ROCHE-2205849

PATIENT
  Age: 74 Year
  Sex: Female
  Weight: 39 kg

DRUGS (1)
  1. ATEZOLIZUMAB. [Suspect]
     Active Substance: ATEZOLIZUMAB
     Indication: LARGE CELL LUNG CANCER
     Route: 041
     Dates: start: 20180914, end: 20180914

REACTIONS (7)
  - Hepatic steatosis [Unknown]
  - Disseminated intravascular coagulation [Recovered/Resolved]
  - Emphysema [Unknown]
  - Hiatus hernia [Unknown]
  - Hydrometra [Recovered/Resolved]
  - Drug eruption [Recovered/Resolved]
  - Haemophagocytic lymphohistiocytosis [Recovered/Resolved]

NARRATIVE: CASE EVENT DATE: 20180921
